FAERS Safety Report 23577419 (Version 3)
Quarter: 2024Q1

REPORT INFORMATION
  Report Type: Spontaneous
  Country: US (occurrence: US)
  Receive Date: 20240228
  Receipt Date: 20240329
  Transmission Date: 20240410
  Serious: Yes (Life-Threatening, Hospitalization, Other)
  Sender: FDA-Public Use
  Company Number: US-BAUSCH-BL-2024-003282

PATIENT
  Age: 40 Year
  Sex: Female
  Weight: 54.5 kg

DRUGS (8)
  1. BUDESONIDE [Suspect]
     Active Substance: BUDESONIDE
     Indication: Colitis microscopic
     Route: 065
     Dates: start: 20220825, end: 20221103
  2. BUDESONIDE [Suspect]
     Active Substance: BUDESONIDE
     Dosage: RESUMED SIX WEEKS LATER.
     Route: 065
  3. PAROXETINE [Suspect]
     Active Substance: PAROXETINE
     Indication: Anxiety
     Route: 048
     Dates: start: 20220613, end: 20221129
  4. PAROXETINE [Suspect]
     Active Substance: PAROXETINE
     Indication: Depression
     Dosage: RESUMED
     Route: 048
     Dates: start: 20221207, end: 20230120
  5. TRAZODONE [Suspect]
     Active Substance: TRAZODONE HYDROCHLORIDE
     Indication: Insomnia
     Dosage: NIGHTLY
     Route: 048
     Dates: start: 20220613, end: 20221129
  6. TRAZODONE [Suspect]
     Active Substance: TRAZODONE HYDROCHLORIDE
     Dosage: NIGHTLY
     Route: 048
     Dates: start: 20230518, end: 20230908
  7. LISDEXAMFETAMINE [Suspect]
     Active Substance: LISDEXAMFETAMINE
     Indication: Attention deficit hyperactivity disorder
     Route: 048
     Dates: start: 20220911, end: 20221129
  8. MOLNUPIRAVIR [Suspect]
     Active Substance: MOLNUPIRAVIR
     Indication: COVID-19
     Route: 065

REACTIONS (4)
  - Drug-induced liver injury [Recovered/Resolved]
  - Acute hepatic failure [Recovered/Resolved]
  - Drug interaction [Recovered/Resolved]
  - Liver transplant [Unknown]
